FAERS Safety Report 8146872-9 (Version None)
Quarter: 2012Q1

REPORT INFORMATION
  Report Type: 
  Country: None (occurrence: None)
  Receive Date: 20120217
  Receipt Date: 20120215
  Transmission Date: 20120608
  Serious: Yes (Other)
  Sender: FDA-Public Use
  Company Number: CA-ABBOTT-12P-028-0901674-00

PATIENT
  Age: 78 Year
  Sex: Male
  Weight: 73 kg

DRUGS (1)
  1. LUPRON DEPOT [Suspect]
     Indication: PRODUCT USED FOR UNKNOWN INDICATION
     Route: 058
     Dates: start: 20070126

REACTIONS (10)
  - NEPHROSTOMY TUBE PLACEMENT [None]
  - NEUTROPENIA [None]
  - RASH ERYTHEMATOUS [None]
  - ENDOCARDITIS BACTERIAL [None]
  - CUSHINGOID [None]
  - ESCHERICHIA INFECTION [None]
  - COLITIS ISCHAEMIC [None]
  - RASH MACULO-PAPULAR [None]
  - STAPHYLOCOCCAL SEPSIS [None]
  - CARDIAC FAILURE CONGESTIVE [None]
